FAERS Safety Report 4556530-5 (Version None)
Quarter: 2005Q1

REPORT INFORMATION
  Report Type: 
  Country: None (occurrence: None)
  Receive Date: 20050118
  Receipt Date: 20050111
  Transmission Date: 20050727
  Serious: Yes (Hospitalization)
  Sender: FDA-Public Use
  Company Number: 2004UW23643

PATIENT
  Age: 70 Year
  Sex: Female
  Weight: 52.163 kg

DRUGS (1)
  1. IRESSA [Suspect]
     Indication: NON-SMALL CELL LUNG CANCER
     Dates: start: 20010214

REACTIONS (1)
  - TUMOUR HAEMORRHAGE [None]
